FAERS Safety Report 9883810 (Version 2)
Quarter: 2014Q1

REPORT INFORMATION
  Report Type: Spontaneous
  Country: IT (occurrence: IT)
  Receive Date: 20140210
  Receipt Date: 20140217
  Transmission Date: 20141002
  Serious: Yes (Other)
  Sender: FDA-Public Use
  Company Number: IT-RANBAXY-2014RR-77803

PATIENT
  Age: 10 Year
  Sex: 0

DRUGS (1)
  1. PARACETAMOL [Suspect]
     Indication: INFLUENZA LIKE ILLNESS
     Dosage: UNK
     Route: 065

REACTIONS (1)
  - Hypersensitivity vasculitis [Recovering/Resolving]
